FAERS Safety Report 15942290 (Version 1)
Quarter: 2019Q1

REPORT INFORMATION
  Report Type: Report from Study
  Country: US (occurrence: US)
  Receive Date: 20190210
  Receipt Date: 20190210
  Transmission Date: 20190417
  Serious: Yes (Hospitalization)
  Sender: FDA-Public Use
  Company Number: PHHO2018US012800

PATIENT
  Age: 2 Year
  Sex: Female
  Weight: 11.4 kg

DRUGS (13)
  1. INC424A [Suspect]
     Active Substance: RUXOLITINIB
     Dosage: 25 MG, BID
     Route: 048
     Dates: end: 20181208
  2. PEGASPARGASE [Suspect]
     Active Substance: PEGASPARGASE
     Indication: LEUKAEMIA
     Dosage: 1325 IU, ONCE/SINGLE
     Route: 042
     Dates: start: 20181114
  3. METHOTREXAT [Suspect]
     Active Substance: METHOTREXATE
     Indication: LEUKAEMIA
     Dosage: 10 MG, WEEKLY
     Route: 037
     Dates: start: 20181101, end: 20181114
  4. MERCAPTOPURINE. [Suspect]
     Active Substance: MERCAPTOPURINE
     Dosage: 25MG X5, 50MG X2
     Route: 048
  5. CYCLOPHOSPHAMIDE. [Suspect]
     Active Substance: CYCLOPHOSPHAMIDE
     Indication: LEUKAEMIA
     Dosage: 530 MG, ONCE/SINGLE (DAYS 1 AND 29)
     Route: 042
     Dates: start: 20181102, end: 20181102
  6. CYTARABINE. [Suspect]
     Active Substance: CYTARABINE
     Dosage: 40 MG, QD
     Route: 058
  7. VINCRISTINE [Suspect]
     Active Substance: VINCRISTINE
     Indication: LEUKAEMIA
     Dosage: 0.8 MG, ONCE/SINGLE
     Route: 042
     Dates: start: 20181114, end: 20181121
  8. VINCRISTINE [Suspect]
     Active Substance: VINCRISTINE
     Dosage: 0.8 MG, ONCE/SINGLE
     Route: 042
     Dates: start: 20181123
  9. MERCAPTOPURINE. [Suspect]
     Active Substance: MERCAPTOPURINE
     Indication: LEUKAEMIA
     Dosage: 25MG X5, 50MG X2
     Route: 048
     Dates: start: 20181101, end: 20181115
  10. INC424A [Suspect]
     Active Substance: RUXOLITINIB
     Indication: B PRECURSOR TYPE ACUTE LEUKAEMIA
     Dosage: 25 MG, BID
     Route: 048
     Dates: start: 20081101, end: 20181115
  11. METHOTREXAT [Suspect]
     Active Substance: METHOTREXATE
     Dosage: 10 MG, WEEKLY
     Route: 037
     Dates: start: 20181123
  12. CYCLOPHOSPHAMIDE. [Suspect]
     Active Substance: CYCLOPHOSPHAMIDE
     Dosage: 530 MG, ONCE/SINGLE
     Route: 042
  13. CYTARABINE. [Suspect]
     Active Substance: CYTARABINE
     Indication: LEUKAEMIA
     Dosage: 40 MG, QD
     Route: 058
     Dates: start: 20181102, end: 20181111

REACTIONS (3)
  - Febrile neutropenia [Recovered/Resolved]
  - Febrile neutropenia [Recovered/Resolved]
  - Pseudomonal bacteraemia [Recovered/Resolved]

NARRATIVE: CASE EVENT DATE: 20181121
